FAERS Safety Report 7960770-2 (Version None)
Quarter: 2011Q4

REPORT INFORMATION
  Report Type: 
  Country: None (occurrence: None)
  Receive Date: 20111207
  Receipt Date: 20111129
  Transmission Date: 20120403
  Serious: Yes (Hospitalization, Other)
  Sender: FDA-Public Use
  Company Number: US-AMGEN-USASP2011045274

PATIENT
  Age: 44 Year
  Sex: Male

DRUGS (1)
  1. ENBREL [Suspect]
     Indication: PSORIASIS
     Dosage: 50 MG, QWK
     Dates: start: 20110510

REACTIONS (7)
  - SCAB [None]
  - SKIN CHAPPED [None]
  - BLISTER [None]
  - PSORIASIS [None]
  - DRY SKIN [None]
  - SKIN REACTION [None]
  - PRURITUS [None]
